FAERS Safety Report 15703474 (Version 2)
Quarter: 2019Q1

REPORT INFORMATION
  Report Type: Spontaneous
  Country: US (occurrence: US)
  Receive Date: 20181210
  Receipt Date: 20190128
  Transmission Date: 20190417
  Serious: No
  Sender: FDA-Public Use
  Company Number: US-PFIZER INC-2018501668

PATIENT
  Age: 2 Year
  Sex: Male
  Weight: 14.6 kg

DRUGS (2)
  1. GENOTROPIN [Suspect]
     Active Substance: SOMATROPIN
     Dosage: 0.3 MG, ALTERNATE DAY (EVERY OTHER DAY)
     Dates: start: 2018
  2. GENOTROPIN [Suspect]
     Active Substance: SOMATROPIN
     Indication: PRADER-WILLI SYNDROME
     Dosage: 0.2 MG, ALTERNATE DAY (EVERY OTHER DAY)
     Dates: start: 2018

REACTIONS (3)
  - Product dose omission [Unknown]
  - Blister [Unknown]
  - Device issue [Unknown]

NARRATIVE: CASE EVENT DATE: 2018
